FAERS Safety Report 9859097 (Version 2)
Quarter: 2014Q2

REPORT INFORMATION
  Report Type: Spontaneous
  Country: US (occurrence: None)
  Receive Date: 20140129
  Receipt Date: 20140624
  Transmission Date: 20141212
  Serious: Yes (Other)
  Sender: FDA-Public Use
  Company Number: 2014-US-000718

PATIENT
  Age: 51 Year
  Sex: Female

DRUGS (2)
  1. XYREM [Suspect]
     Indication: NARCOLEPSY
     Dosage: 1.125 G, BID, ORAL
     Route: 048
     Dates: start: 200612, end: 200805
  2. DILTIAZEM (DILTIAZEM) [Concomitant]

REACTIONS (2)
  - Supraventricular tachycardia [None]
  - Viral infection [None]
